FAERS Safety Report 7971722-0 (Version None)
Quarter: 2011Q4

REPORT INFORMATION
  Report Type: 
  Country: None (occurrence: None)
  Receive Date: 20111212
  Receipt Date: 20111201
  Transmission Date: 20120403
  Serious: Yes (Hospitalization)
  Sender: FDA-Public Use
  Company Number: US-ACTELION-A-NJ2011-50097

PATIENT

DRUGS (3)
  1. TRACLEER [Suspect]
     Indication: PULMONARY ARTERIAL HYPERTENSION
     Dosage: UNK
     Route: 048
     Dates: start: 20090916
  2. ADCIRCA [Concomitant]
  3. COUMADIN [Concomitant]

REACTIONS (7)
  - PULMONARY ARTERIAL HYPERTENSION [None]
  - ASTHENIA [None]
  - CLOSTRIDIAL INFECTION [None]
  - DIARRHOEA [None]
  - RASH [None]
  - URINARY TRACT INFECTION [None]
  - OXYGEN SATURATION DECREASED [None]
